FAERS Safety Report 7508111-9 (Version None)
Quarter: 2011Q2

REPORT INFORMATION
  Report Type: 
  Country: None (occurrence: None)
  Receive Date: 20110519
  Receipt Date: 20110505
  Transmission Date: 20111010
  Serious: Yes (Death, Life-Threatening, Hospitalization)
  Sender: FDA-Public Use
  Company Number: 2011MA005438

PATIENT
  Age: 58 Year
  Sex: Male

DRUGS (1)
  1. DILTIAZEM HYDROCHLORIDE [Suspect]
     Indication: SUICIDE ATTEMPT
     Dosage: 7.2 G;1X; PO
     Route: 048

REACTIONS (8)
  - OVERDOSE [None]
  - BRADYCARDIA [None]
  - COMPLETED SUICIDE [None]
  - HYPOTENSION [None]
  - DEVICE CAPTURING ISSUE [None]
  - HYPOPERFUSION [None]
  - PULMONARY OEDEMA [None]
  - ABDOMINAL DISTENSION [None]
